FAERS Safety Report 6157692-9 (Version None)
Quarter: 2009Q2

REPORT INFORMATION
  Report Type: 
  Country: None (occurrence: None)
  Receive Date: 20090414
  Receipt Date: 20090323
  Transmission Date: 20091009
  Serious: Yes (Hospitalization)
  Sender: FDA-Public Use
  Company Number: HCDA20090002

PATIENT
  Age: 72 Year
  Sex: Male

DRUGS (1)
  1. HYDROCODONE BITARTRATE [Suspect]
     Indication: BACK PAIN

REACTIONS (4)
  - CORNEAL REFLEX DECREASED [None]
  - ENCEPHALOPATHY [None]
  - ISCHAEMIC STROKE [None]
  - VISUAL FIELD DEFECT [None]
